FAERS Safety Report 23248496 (Version 2)
Quarter: 2023Q4

REPORT INFORMATION
  Report Type: Report from Study
  Country: US (occurrence: US)
  Receive Date: 20231201
  Receipt Date: 20231204
  Transmission Date: 20240109
  Serious: Yes (Other)
  Sender: FDA-Public Use
  Company Number: US-AMGEN-USASP2023213175

PATIENT
  Age: 72 Year
  Sex: Female

DRUGS (2)
  1. REPATHA [Suspect]
     Active Substance: EVOLOCUMAB
     Indication: Hypercholesterolaemia
     Dosage: UNK
     Route: 065
  2. REPATHA [Suspect]
     Active Substance: EVOLOCUMAB
     Dosage: 420 MILLIGRAM, QMO
     Route: 065
     Dates: start: 20231124

REACTIONS (7)
  - Rotator cuff syndrome [Unknown]
  - Shoulder arthroplasty [Unknown]
  - Injection site pain [Unknown]
  - Lipids abnormal [Unknown]
  - Drug dose omission by device [Unknown]
  - Device difficult to use [Unknown]
  - Weight decreased [Unknown]

NARRATIVE: CASE EVENT DATE: 20231124
